FAERS Safety Report 8550874-8 (Version None)
Quarter: 2012Q3

REPORT INFORMATION
  Report Type: 
  Country: None (occurrence: None)
  Receive Date: 20120730
  Receipt Date: 20111027
  Transmission Date: 20120928
  Serious: No
  Sender: FDA-Public Use
  Company Number: US-GLAXOSMITHKLINE-A0951419A

PATIENT
  Sex: Female
  Weight: 63.2 kg

DRUGS (1)
  1. ZANTAC [Suspect]
     Indication: BURN OESOPHAGEAL
     Dosage: 600MG PER DAY
     Dates: start: 20100101

REACTIONS (1)
  - HYPERTENSION [None]
